FAERS Safety Report 10086150 (Version 1)
Quarter: 2014Q2

REPORT INFORMATION
  Report Type: Spontaneous
  Country: FR (occurrence: None)
  Receive Date: 20140416
  Receipt Date: 20140416
  Transmission Date: 20141212
  Serious: Yes (Hospitalization)
  Sender: FDA-Public Use
  Company Number: 7281730

PATIENT
  Age: 48 Year
  Sex: Female

DRUGS (2)
  1. LEVOTHYROX 75 (LEVOTHYROXINE SODIUM) (TABLET) (LEVOTHYROXINE SODIUM) [Suspect]
     Indication: PRODUCT USED FOR UNKNOWN INDICATION
     Dosage: 1 DF 1 IN 1 D
     Route: 048
  2. TRIATEC/00885601/(RAMIPRIL) (2.5 MG TABLET) (RAMIPRIL) [Suspect]
     Route: 048
     Dates: start: 20140301, end: 20140302

REACTIONS (6)
  - Angioedema [None]
  - Dysphagia [None]
  - Dysphonia [None]
  - Local swelling [None]
  - Urticaria [None]
  - Dysphagia [None]
